FAERS Safety Report 18940819 (Version 6)
Quarter: 2024Q2

REPORT INFORMATION
  Report Type: Spontaneous
  Country: US (occurrence: US)
  Receive Date: 20210225
  Receipt Date: 20240419
  Transmission Date: 20240716
  Serious: No
  Sender: FDA-Public Use
  Company Number: US-GLAXOSMITHKLINE-US2021AMR052873

PATIENT
  Age: 58 Year
  Sex: Female

DRUGS (5)
  1. BENLYSTA [Suspect]
     Active Substance: BELIMUMAB
     Indication: Product used for unknown indication
     Dosage: UNK
  2. BENLYSTA [Suspect]
     Active Substance: BELIMUMAB
  3. BENLYSTA [Suspect]
     Active Substance: BELIMUMAB
     Indication: Product used for unknown indication
     Dosage: UNK
  4. BENLYSTA [Suspect]
     Active Substance: BELIMUMAB
     Indication: Systemic lupus erythematosus
     Dosage: UNK
  5. BENLYSTA [Suspect]
     Active Substance: BELIMUMAB
     Indication: Systemic lupus erythematosus
     Dosage: 400 MG
     Dates: start: 2014

REACTIONS (11)
  - Back pain [Unknown]
  - Arthralgia [Unknown]
  - Amnesia [Unknown]
  - Disturbance in attention [Unknown]
  - Migraine [Not Recovered/Not Resolved]
  - Asthma [Not Recovered/Not Resolved]
  - Chronic obstructive pulmonary disease [Not Recovered/Not Resolved]
  - Lung disorder [Unknown]
  - Arterial occlusive disease [Unknown]
  - Atrioventricular block [Not Recovered/Not Resolved]
  - Product dose omission issue [Unknown]

NARRATIVE: CASE EVENT DATE: 20230501
